FAERS Safety Report 9852514 (Version 2)
Quarter: 2014Q1

REPORT INFORMATION
  Report Type: Spontaneous
  Country: BR (occurrence: BR)
  Receive Date: 20140129
  Receipt Date: 20140129
  Transmission Date: 20141002
  Serious: Yes (Death, Other)
  Sender: FDA-Public Use
  Company Number: BR-BRISTOL-MYERS SQUIBB COMPANY-19850072

PATIENT
  Age: 70 Year
  Sex: Male

DRUGS (1)
  1. YERVOY [Suspect]
     Dosage: 3RD DOSE ON 06NOV13, 300 MG

REACTIONS (4)
  - Sepsis [Fatal]
  - Intestinal perforation [Unknown]
  - Diarrhoea haemorrhagic [Recovering/Resolving]
  - Chills [Recovering/Resolving]
